FAERS Safety Report 6303276-9 (Version None)
Quarter: 2009Q3

REPORT INFORMATION
  Report Type: 
  Country: None (occurrence: None)
  Receive Date: 20090810
  Receipt Date: 20090430
  Transmission Date: 20100115
  Serious: Yes (Disabling)
  Sender: FDA-Public Use
  Company Number: A0781291A

PATIENT
  Sex: Male

DRUGS (2)
  1. PAXIL [Suspect]
     Indication: ANXIETY
     Dosage: 40MG PER DAY
     Route: 048
     Dates: end: 20070601
  2. DEPAKOTE [Concomitant]

REACTIONS (2)
  - EJACULATION DISORDER [None]
  - ERECTILE DYSFUNCTION [None]
